FAERS Safety Report 12926593 (Version 4)
Quarter: 2017Q3

REPORT INFORMATION
  Report Type: Report from Study
  Country: AR (occurrence: AR)
  Receive Date: 20161109
  Receipt Date: 20170712
  Transmission Date: 20171127
  Serious: Yes (Hospitalization)
  Sender: FDA-Public Use
  Company Number: AR-PFIZER INC-2016509413

PATIENT
  Age: 71 Year
  Sex: Female
  Weight: 107 kg

DRUGS (5)
  1. METHOTREXATE. [Suspect]
     Active Substance: METHOTREXATE
     Indication: RHEUMATOID ARTHRITIS
     Dosage: 15 MG, WEEKLY
     Route: 048
     Dates: start: 20130108, end: 20161024
  2. TOFACITINIB CITRATE [Suspect]
     Active Substance: TOFACITINIB CITRATE
     Indication: RHEUMATOID ARTHRITIS
     Dosage: 5 MG, 2X/DAY
     Route: 048
     Dates: start: 20160728, end: 20161031
  3. HYDROCHLOROTHIAZIDE. [Concomitant]
     Active Substance: HYDROCHLOROTHIAZIDE
     Indication: HYPERTENSION
     Dosage: 12.5 MG, DAILY
     Route: 048
     Dates: start: 20150914
  4. LYSINE CLONIXINATE [Concomitant]
     Indication: RHEUMATOID ARTHRITIS
     Dosage: 125 MG, DAILY
     Route: 048
     Dates: start: 20160425
  5. FOLIC ACID. [Concomitant]
     Active Substance: FOLIC ACID
     Indication: PROPHYLAXIS
     Dosage: 5 MG, WEEKLY
     Route: 048
     Dates: start: 20130108, end: 20161025

REACTIONS (1)
  - Cellulitis [Recovered/Resolved]

NARRATIVE: CASE EVENT DATE: 20161030
